FAERS Safety Report 8594530-9 (Version None)
Quarter: 2012Q3

REPORT INFORMATION
  Report Type: 
  Country: None (occurrence: None)
  Receive Date: 20120815
  Receipt Date: 20120807
  Transmission Date: 20120928
  Serious: Yes (Hospitalization)
  Sender: FDA-Public Use
  Company Number: US-BAYER-2012-003791

PATIENT
  Age: 31 Year
  Sex: Female
  Weight: 56.689 kg

DRUGS (4)
  1. YAZ [Suspect]
     Dosage: UNK
     Dates: start: 20071101, end: 20081101
  2. VITAMIN TAB [Concomitant]
     Dosage: UNK
     Dates: start: 20090114, end: 20090128
  3. YAZ [Suspect]
     Dosage: UNK
     Dates: start: 20080101, end: 20090128
  4. DROSPIRENONE AND ETHINYL ESTRADIOL [Suspect]
     Dosage: UNK
     Dates: start: 20081101, end: 20090128

REACTIONS (9)
  - PULMONARY EMBOLISM [None]
  - INJURY [None]
  - PAIN [None]
  - ANHEDONIA [None]
  - ANXIETY [None]
  - DEEP VEIN THROMBOSIS [None]
  - DYSPNOEA [None]
  - MOBILITY DECREASED [None]
  - EMOTIONAL DISTRESS [None]
